FAERS Safety Report 9405274 (Version 1)
Quarter: 2013Q3

REPORT INFORMATION
  Report Type: Report from Study
  Country: US (occurrence: US)
  Receive Date: 20130717
  Receipt Date: 20130717
  Transmission Date: 20140515
  Serious: Yes (Hospitalization, Other)
  Sender: FDA-Public Use
  Company Number: US-BAYER-2013-078052

PATIENT
  Age: 66 Year
  Sex: Male

DRUGS (2)
  1. STIVARGA [Suspect]
     Indication: COLON CANCER
     Dosage: 160 MG, QD (AM X 21 DAYS)
     Route: 048
  2. STIVARGA [Suspect]
     Indication: COLON CANCER
     Dosage: 80 MG, QD
     Route: 048

REACTIONS (7)
  - Oral candidiasis [None]
  - Stomatitis [None]
  - Chest pain [None]
  - Gingival pain [None]
  - Oral pain [None]
  - Odynophagia [None]
  - Weight decreased [None]
